FAERS Safety Report 6981456-7 (Version None)
Quarter: 2010Q3

REPORT INFORMATION
  Report Type: 
  Country: None (occurrence: None)
  Receive Date: 20100914
  Receipt Date: 20100831
  Transmission Date: 20110219
  Serious: Yes (Death)
  Sender: FDA-Public Use
  Company Number: US-MYLANLABS-2010S1015923

PATIENT
  Age: 69 Year
  Sex: Female

DRUGS (6)
  1. OXYCODONE [Suspect]
     Route: 065
  2. ACETAMINOPHEN [Suspect]
     Route: 065
  3. DIPHENHYDRAMINE HCL [Suspect]
     Route: 065
  4. BUPROPION HCL [Suspect]
     Route: 065
  5. DULOXETINE [Suspect]
     Route: 065
  6. QUETIAPINE [Suspect]
     Route: 065

REACTIONS (1)
  - DRUG TOXICITY [None]
